FAERS Safety Report 5337406-2 (Version None)
Quarter: 2007Q1

REPORT INFORMATION
  Report Type: 
  Country: None (occurrence: None)
  Receive Date: 20070309
  Receipt Date: 20060405
  Transmission Date: 20070707
  Serious: Yes (Hospitalization)
  Sender: FDA-Public Use
  Company Number: US200604000915

PATIENT
  Sex: Male

DRUGS (1)
  1. GEMZAR [Suspect]
     Indication: LYMPHOMA
     Dates: start: 20060301

REACTIONS (3)
  - HYPERSENSITIVITY [None]
  - PRURITUS ALLERGIC [None]
  - PYREXIA [None]
